FAERS Safety Report 14349743 (Version 1)
Quarter: 2018Q1

REPORT INFORMATION
  Report Type: Report from Study
  Country: GB (occurrence: GB)
  Receive Date: 20180104
  Receipt Date: 20180104
  Transmission Date: 20180509
  Serious: Yes (Other)
  Sender: FDA-Public Use
  Company Number: PHHY2017GB195485

PATIENT
  Sex: Male

DRUGS (1)
  1. COSENTYX [Suspect]
     Active Substance: SECUKINUMAB
     Indication: ANKYLOSING SPONDYLITIS
     Dosage: 150 MG, QMO
     Route: 065
     Dates: start: 20171023

REACTIONS (7)
  - Depressed mood [Unknown]
  - Asthenia [Unknown]
  - Crying [Unknown]
  - Hypophagia [Unknown]
  - Suicidal ideation [Unknown]
  - Nasopharyngitis [Unknown]
  - Insomnia [Unknown]
